FAERS Safety Report 9995491 (Version 1)
Quarter: 2014Q1

REPORT INFORMATION
  Report Type: Spontaneous
  Country: JP (occurrence: None)
  Receive Date: 20140307
  Receipt Date: 20140307
  Transmission Date: 20141002
  Serious: Yes (Hospitalization, Other)
  Sender: FDA-Public Use
  Company Number: 2008JP004069

PATIENT
  Age: 25 Year
  Sex: Female
  Weight: 60 kg

DRUGS (15)
  1. PROGRAF (TACROLIMUS) CAPSULE [Suspect]
     Indication: LUPUS NEPHRITIS
     Dosage: 2 MG, UID/QD, ORAL
     Route: 048
     Dates: start: 20071129
  2. PREDNISOLONE [Suspect]
     Indication: LUPUS NEPHRITIS
     Route: 048
     Dates: end: 20071224
  3. OMEPRAL (OMEPRAZOLE) [Concomitant]
  4. ONEALFA (ALFACALCIDOL) [Concomitant]
  5. GLAKAY (MENATETRENONE) [Concomitant]
  6. PLETAAL (CILOSTAZOL) [Concomitant]
  7. LOXONIN (LOXOPROFEN SODIUM) [Concomitant]
  8. SELBEX (TEPRENONE) [Concomitant]
  9. CODEINE PHOSPHATE (CODEINE PHOSPHATE) [Concomitant]
  10. SINGULAIR (MONTELUKAST SODIUM) [Concomitant]
  11. NEUER (CETRAXATE HYDROCHLORIDE) [Concomitant]
  12. IRON (IRON) [Concomitant]
  13. PL GRAN. (CAFFEINE, PARACETAMOL, PROMETHAZINE METHYLENE DISALICYLATE, SALICYLAMIDE) [Concomitant]
  14. ISODINE GARGLE (POVIDONE-IODINE) [Concomitant]
  15. DORNER (BERAPROST SODIUM) [Concomitant]

REACTIONS (9)
  - Intentional drug misuse [None]
  - Hyperthermia [None]
  - Skin ulcer [None]
  - Anaemia [None]
  - Cough [None]
  - Premature labour [None]
  - Headache [None]
  - Somnolence [None]
  - Maternal exposure during pregnancy [None]
